FAERS Safety Report 6348151-9 (Version None)
Quarter: 2009Q3

REPORT INFORMATION
  Report Type: 
  Country: None (occurrence: None)
  Receive Date: 20090908
  Receipt Date: 20090821
  Transmission Date: 20100115
  Serious: Yes (Death, Hospitalization, Disabling)
  Sender: FDA-Public Use
  Company Number: 2006BI007074

PATIENT
  Age: 63 Year
  Sex: Female
  Weight: 159 kg

DRUGS (10)
  1. ZEVALIN [Suspect]
     Indication: CENTRAL NERVOUS SYSTEM LYMPHOMA
     Dosage: 15 MBQ/KG;1X;IV
     Route: 042
     Dates: start: 20060301, end: 20060301
  2. RITUXIMAB [Concomitant]
  3. FORTECORTIN [Concomitant]
  4. CARMEN [Concomitant]
  5. COSAAR PLUS [Concomitant]
  6. PANTOZOL [Concomitant]
  7. VITAMIN B COMPLEX CAP [Concomitant]
  8. AMPHOTERICIN B [Concomitant]
  9. ARA-C [Concomitant]
  10. METHOTREXATE [Concomitant]

REACTIONS (9)
  - ACUTE RESPIRATORY DISTRESS SYNDROME [None]
  - ASTHENIA [None]
  - BLOOD GLUCOSE DECREASED [None]
  - GENERAL PHYSICAL CONDITION ABNORMAL [None]
  - MULTI-ORGAN FAILURE [None]
  - NO THERAPEUTIC RESPONSE [None]
  - PANCYTOPENIA [None]
  - PNEUMONIA [None]
  - SEPSIS [None]
